FAERS Safety Report 15148543 (Version 2)
Quarter: 2019Q1

REPORT INFORMATION
  Report Type: Spontaneous
  Country: US (occurrence: US)
  Receive Date: 20180716
  Receipt Date: 20190102
  Transmission Date: 20190417
  Serious: No
  Sender: FDA-Public Use
  Company Number: US-009507513-1806USA011690

PATIENT
  Age: 18 Year
  Sex: Female
  Weight: 117.91 kg

DRUGS (2)
  1. NEXPLANON [Suspect]
     Active Substance: ETONOGESTREL
     Dosage: 1 DF, UNK, IN LEFT ARM
     Route: 059
     Dates: start: 20161103
  2. DEPO-PROVERA [Concomitant]
     Active Substance: MEDROXYPROGESTERONE ACETATE
     Dosage: UNK
     Dates: start: 201707

REACTIONS (4)
  - Amenorrhoea [Unknown]
  - Device expulsion [Unknown]
  - Complication associated with device [Unknown]
  - No adverse event [Unknown]

NARRATIVE: CASE EVENT DATE: 201611
